FAERS Safety Report 4355939-2 (Version None)
Quarter: 2004Q2

REPORT INFORMATION
  Report Type: 
  Country: None (occurrence: None)
  Receive Date: 20040510
  Receipt Date: 20040427
  Transmission Date: 20050107
  Serious: No
  Sender: FDA-Public Use
  Company Number: 2004021532

PATIENT
  Age: 42 Year
  Sex: Male
  Weight: 72.5755 kg

DRUGS (1)
  1. ROGAINE [Suspect]
     Indication: ALOPECIA
     Dosage: TOPICAL
     Route: 061
     Dates: start: 20040310, end: 20040314

REACTIONS (9)
  - BURNING SENSATION [None]
  - DERMATITIS ALLERGIC [None]
  - DERMATITIS EXFOLIATIVE [None]
  - DRY SKIN [None]
  - PRURITUS [None]
  - RESPIRATORY DISTRESS [None]
  - SELF-MEDICATION [None]
  - SWELLING [None]
  - URTICARIA GENERALISED [None]
